FAERS Safety Report 10907890 (Version 1)
Quarter: 2015Q1

REPORT INFORMATION
  Report Type: Report from Study
  Country: IT (occurrence: IT)
  Receive Date: 20150312
  Receipt Date: 20150312
  Transmission Date: 20150721
  Serious: Yes (Death, Other)
  Sender: FDA-Public Use
  Company Number: IT-ABBVIE-15P-083-1358822-00

PATIENT
  Sex: Female
  Weight: 60 kg

DRUGS (1)
  1. DUODOPA [Suspect]
     Active Substance: CARBIDOPA\LEVODOPA
     Indication: PARKINSON^S DISEASE
     Dosage: MD 8(+3), CR 3,7, ED 2
     Route: 050
     Dates: start: 20130917, end: 20150307

REACTIONS (3)
  - Stoma site abscess [Fatal]
  - Condition aggravated [Unknown]
  - Sepsis [Fatal]
